FAERS Safety Report 8135969-5 (Version None)
Quarter: 2012Q1

REPORT INFORMATION
  Report Type: 
  Country: None (occurrence: None)
  Receive Date: 20120214
  Receipt Date: 20120207
  Transmission Date: 20120608
  Serious: Yes (Hospitalization)
  Sender: FDA-Public Use
  Company Number: US-BAYER-2011-040251

PATIENT
  Age: 18 Year
  Sex: Female
  Weight: 66.213 kg

DRUGS (1)
  1. YAZ [Suspect]
     Indication: CONTRACEPTION
     Dosage: UNK
     Dates: start: 20050101, end: 20080401

REACTIONS (3)
  - PAIN [None]
  - GALLBLADDER INJURY [None]
  - CHOLECYSTITIS CHRONIC [None]
